FAERS Safety Report 19030012 (Version 1)
Quarter: 2021Q1

REPORT INFORMATION
  Report Type: Spontaneous
  Country: US (occurrence: US)
  Receive Date: 20210319
  Receipt Date: 20210319
  Transmission Date: 20210420
  Serious: No
  Sender: FDA-Public Use
  Company Number: US-GLAXOSMITHKLINE-US2021063838

PATIENT
  Sex: Female

DRUGS (1)
  1. TRELEGY ELLIPTA [Suspect]
     Active Substance: FLUTICASONE FUROATE\UMECLIDINIUM BROMIDE\VILANTEROL TRIFENATATE
     Indication: CHRONIC OBSTRUCTIVE PULMONARY DISEASE
     Dosage: 1 PUFF(S), QD (100?62.5MCG INH 30PUSE)
     Route: 055

REACTIONS (4)
  - Arthropathy [Unknown]
  - Fall [Unknown]
  - Lower limb fracture [Recovered/Resolved with Sequelae]
  - Movement disorder [Unknown]

NARRATIVE: CASE EVENT DATE: 20201224
